FAERS Safety Report 9435300 (Version 1)
Quarter: 2013Q3

REPORT INFORMATION
  Report Type: Spontaneous
  Country: US (occurrence: None)
  Receive Date: 20130730
  Receipt Date: 20130730
  Transmission Date: 20140515
  Serious: Yes (Life-Threatening, Hospitalization)
  Sender: FDA-Public Use
  Company Number: 2013AP006960

PATIENT
  Age: 61 Year
  Sex: Male

DRUGS (1)
  1. AZITHROMYCIN (AZITHROMYCIN) [Suspect]
     Route: 048
     Dates: start: 20120924, end: 20120925

REACTIONS (2)
  - Ventricular tachycardia [None]
  - Electrocardiogram QRS complex prolonged [None]
